FAERS Safety Report 7985177-3 (Version None)
Quarter: 2011Q4

REPORT INFORMATION
  Report Type: 
  Country: None (occurrence: None)
  Receive Date: 20111216
  Receipt Date: 20111202
  Transmission Date: 20120403
  Serious: Yes (Other)
  Sender: FDA-Public Use
  Company Number: PHHY2011FR107895

PATIENT
  Sex: Female

DRUGS (7)
  1. PARACETAMOL [Concomitant]
  2. CODEINE SULFATE [Concomitant]
  3. TIMOFEROL [Concomitant]
     Dosage: UNK UKN, UNK
     Dates: start: 20100101
  4. TIMOFEROL [Concomitant]
     Dosage: 1 DF, DAILY
     Dates: start: 20110801, end: 20111101
  5. FEMARA [Suspect]
     Dosage: 1 DF, DAILY
     Route: 048
     Dates: end: 20110701
  6. FEMARA [Suspect]
     Dosage: UNK UKN, UNK
  7. TIMOFEROL [Concomitant]
     Dosage: 2 DF, DAILY
     Dates: start: 20110201

REACTIONS (6)
  - PARAESTHESIA [None]
  - ARTHRALGIA [None]
  - MUSCLE SPASMS [None]
  - COUGH [None]
  - DYSPNOEA [None]
  - IRON DEFICIENCY ANAEMIA [None]
